FAERS Safety Report 8890489 (Version 1)
Quarter: 2012Q4

REPORT INFORMATION
  Report Type: 
  Country: ES (occurrence: ES)
  Receive Date: 20121107
  Receipt Date: 20121107
  Transmission Date: 20130627
  Serious: No
  Sender: FDA-Public Use
  Company Number: ES-009507513-1210ESP013824

PATIENT
  Age: 22 Month
  Sex: Female

DRUGS (2)
  1. SINGULAIR [Suspect]
     Indication: ASTHMA
     Dosage: 4 mg, qd
     Route: 048
     Dates: start: 201206, end: 201206
  2. BUDESONIDE [Concomitant]
     Indication: ASTHMA

REACTIONS (1)
  - Alice in wonderland syndrome [Recovered/Resolved]
